FAERS Safety Report 18744265 (Version 2)
Quarter: 2021Q1

REPORT INFORMATION
  Report Type: Report from Study
  Country: ES (occurrence: ES)
  Receive Date: 20210115
  Receipt Date: 20210128
  Transmission Date: 20210419
  Serious: No
  Sender: FDA-Public Use
  Company Number: ES-JNJFOC-20210114703

PATIENT
  Sex: Female
  Weight: 60 kg

DRUGS (1)
  1. ERDAFITINIB. [Suspect]
     Active Substance: ERDAFITINIB
     Indication: THYROID CANCER
     Route: 048
     Dates: start: 20201120

REACTIONS (4)
  - Off label use [Unknown]
  - Mucosal inflammation [Recovering/Resolving]
  - Product use in unapproved indication [Unknown]
  - Fatigue [Recovering/Resolving]

NARRATIVE: CASE EVENT DATE: 20201120
